FAERS Safety Report 6525813-1 (Version None)
Quarter: 2010Q1

REPORT INFORMATION
  Report Type: 
  Country: None (occurrence: None)
  Receive Date: 20100104
  Receipt Date: 20091222
  Transmission Date: 20100710
  Serious: Yes (Hospitalization)
  Sender: FDA-Public Use
  Company Number: B0581826A

PATIENT
  Sex: Female

DRUGS (7)
  1. LAMICTAL [Suspect]
     Indication: BIPOLAR DISORDER
     Dosage: 100MG TWICE PER DAY
     Route: 048
     Dates: start: 20090101, end: 20090527
  2. VENTOLIN [Concomitant]
     Indication: CHRONIC OBSTRUCTIVE PULMONARY DISEASE
     Route: 055
  3. TOLVON [Concomitant]
     Indication: DEPRESSION
     Dosage: 30MG PER DAY
     Route: 048
  4. LITHIONIT [Concomitant]
     Indication: BIPOLAR DISORDER
     Dosage: 249MG PER DAY
     Route: 048
  5. FOLIC ACID [Concomitant]
     Dosage: .4MG PER DAY
     Route: 048
  6. LEVOTHYROXINE SODIUM [Concomitant]
     Indication: METABOLIC DISORDER
     Dosage: 100MCG PER DAY
     Route: 048
  7. ATROVENT [Concomitant]
     Indication: CHRONIC OBSTRUCTIVE PULMONARY DISEASE
     Route: 055

REACTIONS (8)
  - APLASIA PURE RED CELL [None]
  - DIARRHOEA [None]
  - GENERAL PHYSICAL HEALTH DETERIORATION [None]
  - HAEMOGLOBIN DECREASED [None]
  - HEADACHE [None]
  - MELAENA [None]
  - NAUSEA [None]
  - VOMITING [None]
